FAERS Safety Report 7211575-1 (Version None)
Quarter: 2011Q1

REPORT INFORMATION
  Report Type: 
  Country: None (occurrence: None)
  Receive Date: 20110105
  Receipt Date: 20110105
  Transmission Date: 20110831
  Serious: Yes (Other)
  Sender: FDA-Public Use
  Company Number: US-PFIZER INC-2010077251

PATIENT
  Age: 16 Year
  Sex: Female
  Weight: 61.678 kg

DRUGS (1)
  1. DOSTINEX [Suspect]
     Indication: GALACTORRHOEA
     Dosage: 0.5 MG, DAILY
     Route: 048
     Dates: start: 20100416, end: 20100617

REACTIONS (2)
  - MITRAL VALVE DISEASE [None]
  - INCORRECT DOSE ADMINISTERED [None]
